FAERS Safety Report 19421072 (Version 3)
Quarter: 2021Q3

REPORT INFORMATION
  Report Type: Spontaneous
  Country: NG (occurrence: NG)
  Receive Date: 20210615
  Receipt Date: 20210702
  Transmission Date: 20211014
  Serious: Yes (Hospitalization, Other)
  Sender: FDA-Public Use
  Company Number: NG-009507513-2106NGA003948

PATIENT
  Age: 16 Year
  Sex: Male
  Weight: 62 kg

DRUGS (2)
  1. ZENTEL [Suspect]
     Active Substance: ALBENDAZOLE
     Dosage: 400 MILLIGRAM
     Dates: start: 20210428
  2. MECTIZAN [Suspect]
     Active Substance: IVERMECTIN
     Dosage: 3 MG
     Route: 048
     Dates: start: 20210428

REACTIONS (5)
  - Rash [Unknown]
  - Cold sweat [Unknown]
  - Acute respiratory distress syndrome [Unknown]
  - Seizure [Unknown]
  - Loss of consciousness [Recovered/Resolved]

NARRATIVE: CASE EVENT DATE: 20210428
